APPROVED DRUG PRODUCT: CHLORTHALIDONE
Active Ingredient: CHLORTHALIDONE
Strength: 50MG
Dosage Form/Route: TABLET;ORAL
Application: A209068 | Product #002
Applicant: SUNNY PHARMTECH INC
Approved: Jan 25, 2022 | RLD: No | RS: No | Type: DISCN